FAERS Safety Report 16538414 (Version 1)
Quarter: 2019Q3

REPORT INFORMATION
  Report Type: Spontaneous
  Country: US (occurrence: US)
  Receive Date: 20190523
  Receipt Date: 20190523
  Transmission Date: 20191004
  Serious: Yes (Other)
  Sender: FDA-Public Use
  Company Number: None

PATIENT
  Age: 68 Year
  Sex: Male

DRUGS (2)
  1. TRADJENTA [Concomitant]
     Active Substance: LINAGLIPTIN
  2. RECLAST [Suspect]
     Active Substance: ZOLEDRONIC ACID
     Indication: OSTEOPOROSIS
     Dosage: ?          OTHER DOSE:5/100 MG/ML;?
     Route: 042
     Dates: start: 20190219

REACTIONS (3)
  - Pain [None]
  - Pancreatitis [None]
  - Pyrexia [None]

NARRATIVE: CASE EVENT DATE: 20190219
